FAERS Safety Report 14716288 (Version 5)
Quarter: 2019Q2

REPORT INFORMATION
  Report Type: Spontaneous
  Country: US (occurrence: US)
  Receive Date: 20180404
  Receipt Date: 20190410
  Transmission Date: 20190711
  Serious: Yes (Other)
  Sender: FDA-Public Use
  Company Number: US-PFIZER INC-2018133613

PATIENT
  Age: 66 Year
  Sex: Female

DRUGS (41)
  1. NEXIUM 24HR [Suspect]
     Active Substance: ESOMEPRAZOLE MAGNESIUM
     Dosage: UNK
     Dates: end: 201709
  2. PREVACID 24 HR [Suspect]
     Active Substance: LANSOPRAZOLE
     Dosage: UNK
     Route: 065
     Dates: start: 200707, end: 200908
  3. PLAVIX [Concomitant]
     Active Substance: CLOPIDOGREL BISULFATE
  4. NITROGLYCERIN. [Concomitant]
     Active Substance: NITROGLYCERIN
  5. NEXIUM [Suspect]
     Active Substance: ESOMEPRAZOLE MAGNESIUM
     Dosage: UNK
     Route: 048
     Dates: start: 200707, end: 201709
  6. PREVACID [Suspect]
     Active Substance: LANSOPRAZOLE
     Dosage: UNK
     Route: 048
     Dates: start: 200707, end: 201709
  7. PRILOSEC [Suspect]
     Active Substance: OMEPRAZOLE MAGNESIUM
     Dosage: UNK
     Route: 048
     Dates: start: 200707, end: 200908
  8. DIVALPROEX [Concomitant]
     Active Substance: DIVALPROEX SODIUM
  9. LANTUS [Concomitant]
     Active Substance: INSULIN GLARGINE
     Dates: start: 20070720
  10. PREVACID [Suspect]
     Active Substance: LANSOPRAZOLE
     Dosage: UNK
     Route: 065
     Dates: start: 200707, end: 200908
  11. LEVOTHYROXINE. [Concomitant]
     Active Substance: LEVOTHYROXINE
  12. TRAMADOL. [Concomitant]
     Active Substance: TRAMADOL
     Dates: start: 20090209
  13. KEPPRA [Concomitant]
     Active Substance: LEVETIRACETAM
     Dates: start: 20070720
  14. CLOPIDOGREL [Concomitant]
     Active Substance: CLOPIDOGREL BISULFATE
     Dates: start: 20030701
  15. TOPIRAMATE. [Concomitant]
     Active Substance: TOPIRAMATE
  16. BENZONATATE. [Concomitant]
     Active Substance: BENZONATATE
     Dates: start: 20160118
  17. PREVACID 24 HR [Suspect]
     Active Substance: LANSOPRAZOLE
     Dosage: UNK
     Dates: start: 200707, end: 201709
  18. PRILOSEC [Suspect]
     Active Substance: OMEPRAZOLE MAGNESIUM
     Dosage: UNK
     Route: 048
     Dates: start: 200707, end: 201709
  19. BUSPAR [Concomitant]
     Active Substance: BUSPIRONE HYDROCHLORIDE
  20. PITAVASTATIN. [Concomitant]
     Active Substance: PITAVASTATIN CALCIUM
  21. TOUJEO [Concomitant]
     Active Substance: INSULIN GLARGINE
  22. FUROSEMIDE. [Concomitant]
     Active Substance: FUROSEMIDE
     Dates: start: 20070808
  23. NEXIUM [Suspect]
     Active Substance: ESOMEPRAZOLE MAGNESIUM
     Dosage: UNK
     Route: 048
     Dates: start: 200707, end: 200908
  24. OMEPRAZOLE. [Suspect]
     Active Substance: OMEPRAZOLE
     Dosage: GENERIC 20 MG, UNK
     Route: 065
     Dates: start: 20090915
  25. NOVOLOG [Concomitant]
     Active Substance: INSULIN ASPART
  26. MECLIZINE [Concomitant]
     Active Substance: MECLIZINE HYDROCHLORIDE
     Dates: start: 20100712
  27. SIMVASTATIN. [Concomitant]
     Active Substance: SIMVASTATIN
     Dates: start: 20070808
  28. NEXIUM [Suspect]
     Active Substance: ESOMEPRAZOLE MAGNESIUM
     Dosage: 40 MG, UNK
     Route: 048
     Dates: start: 20070720
  29. PROTONIX [Suspect]
     Active Substance: PANTOPRAZOLE SODIUM
     Dosage: UNK
     Route: 048
     Dates: start: 200707, end: 201709
  30. DEXILANT [Suspect]
     Active Substance: DEXLANSOPRAZOLE
     Dosage: UNK
     Route: 048
     Dates: start: 200707, end: 201709
  31. PRILOSEC OTC [Suspect]
     Active Substance: OMEPRAZOLE MAGNESIUM
     Dosage: UNK
     Dates: start: 200707, end: 201709
  32. DIGOXIN. [Concomitant]
     Active Substance: DIGOXIN
  33. PREDNISONE. [Concomitant]
     Active Substance: PREDNISONE
  34. CEPHALEXIN [CEFALEXIN] [Concomitant]
     Active Substance: CEPHALEXIN
     Dates: start: 20160118
  35. LISINOPRIL. [Concomitant]
     Active Substance: LISINOPRIL
     Dates: start: 20070817
  36. DEPAKOTE [Concomitant]
     Active Substance: DIVALPROEX SODIUM
     Dates: start: 20070802
  37. BIOTIN [Concomitant]
     Active Substance: BIOTIN
  38. GABAPENTIN. [Concomitant]
     Active Substance: GABAPENTIN
  39. COREG [Concomitant]
     Active Substance: CARVEDILOL
     Dates: start: 20070714
  40. LORAZEPAM. [Concomitant]
     Active Substance: LORAZEPAM
     Dates: start: 20070808
  41. AMLODIPINE [Concomitant]
     Active Substance: AMLODIPINE BESYLATE
     Dates: start: 20070808

REACTIONS (1)
  - Chronic kidney disease [Unknown]
